FAERS Safety Report 5399296-1 (Version None)
Quarter: 2007Q3

REPORT INFORMATION
  Report Type: 
  Country: None (occurrence: None)
  Receive Date: 20070727
  Receipt Date: 20070718
  Transmission Date: 20080115
  Serious: Yes (Death, Life-Threatening, Hospitalization)
  Sender: FDA-Public Use
  Company Number: US-SANOFI-SYNTHELABO-A03200704705

PATIENT
  Age: 71 Year
  Sex: Female

DRUGS (2)
  1. ELOXATIN [Suspect]
     Indication: BILE DUCT CANCER
     Route: 042
  2. GEMCITABINE HCL [Suspect]
     Route: 042

REACTIONS (2)
  - DEATH [None]
  - ISCHAEMIC STROKE [None]
